FAERS Safety Report 5198714-1 (Version None)
Quarter: 2007Q1

REPORT INFORMATION
  Report Type: 
  Country: None (occurrence: None)
  Receive Date: 20070104
  Receipt Date: 20070102
  Transmission Date: 20070707
  Serious: Yes (Other)
  Sender: FDA-Public Use
  Company Number: 45048

PATIENT
  Age: 52 Year
  Sex: Female

DRUGS (6)
  1. WELLBUTRIN XL [Suspect]
     Indication: DRUG USE FOR UNKNOWN INDICATION
     Dosage: 900MG PER DAY
     Route: 048
     Dates: end: 20060320
  2. BUPROPION HYDROCHLORIDE [Suspect]
     Indication: DRUG USE FOR UNKNOWN INDICATION
     Dosage: 450MG PER DAY
     Route: 048
  3. BUSPAR [Concomitant]
  4. CELEXA [Concomitant]
  5. TRAZODONE HCL [Concomitant]
  6. FOCALIN [Concomitant]

REACTIONS (7)
  - ADVERSE EVENT [None]
  - BLINDNESS UNILATERAL [None]
  - CEREBROVASCULAR ACCIDENT [None]
  - EMOTIONAL DISORDER [None]
  - MEDICATION ERROR [None]
  - MYOCARDIAL INFARCTION [None]
  - OVERDOSE [None]
